FAERS Safety Report 10014572 (Version 1)
Quarter: 2014Q1

REPORT INFORMATION
  Report Type: Spontaneous
  Country: AU (occurrence: AU)
  Receive Date: 20140317
  Receipt Date: 20140317
  Transmission Date: 20141002
  Serious: Yes (Other)
  Sender: FDA-Public Use
  Company Number: AU-ROXANE LABORATORIES, INC.-2014-RO-00412RO

PATIENT
  Age: 54 Year
  Sex: Male

DRUGS (3)
  1. RISPERIDONE [Suspect]
     Indication: SCHIZOPHRENIA
     Dosage: 4 MG
     Route: 048
  2. RISPERDAL CONSTA [Suspect]
     Indication: SCHIZOPHRENIA
     Route: 065
  3. GLICLAZIDE [Concomitant]
     Indication: DIABETES MELLITUS
     Route: 065

REACTIONS (3)
  - Nightmare [Recovered/Resolved]
  - Abnormal dreams [Recovered/Resolved]
  - Anxiety [Unknown]
